FAERS Safety Report 4456195-7 (Version None)
Quarter: 2004Q3

REPORT INFORMATION
  Report Type: 
  Country: None (occurrence: None)
  Receive Date: 20040920
  Receipt Date: 20040909
  Transmission Date: 20050211
  Serious: Yes (Hospitalization)
  Sender: FDA-Public Use
  Company Number: 2004UW13585

PATIENT
  Age: 50 Year
  Sex: Female

DRUGS (8)
  1. ARIMIDEX [Suspect]
     Indication: BREAST CANCER
     Dates: start: 20030501
  2. ARIMIDEX [Suspect]
     Indication: BREAST CANCER
     Dates: start: 20030801, end: 20040101
  3. ARIMIDEX [Suspect]
     Indication: BREAST CANCER
     Dates: start: 20040203, end: 20040304
  4. ARIMIDEX [Suspect]
     Indication: BREAST CANCER
     Dates: start: 20040629
  5. TAMOXIFEN CITRATE [Concomitant]
  6. SLOW-K [Concomitant]
  7. LIPITOR [Concomitant]
  8. ATIVAN [Concomitant]

REACTIONS (4)
  - CATHETER RELATED COMPLICATION [None]
  - HEADACHE [None]
  - SWELLING FACE [None]
  - THROMBOSIS [None]
